FAERS Safety Report 21251427 (Version 3)
Quarter: 2022Q4

REPORT INFORMATION
  Report Type: Other
  Country: US (occurrence: None)
  Receive Date: 20220825
  Receipt Date: 20221208
  Transmission Date: 20230113
  Serious: Yes (Other)
  Sender: FDA-Public Use
  Company Number: US-ROCHE-3165298

PATIENT
  Age: 77 Year
  Sex: Male

DRUGS (2)
  1. XELODA [Suspect]
     Active Substance: CAPECITABINE
     Indication: Colorectal cancer metastatic
     Dosage: TAKE TWO 500MG TABLET AND FOUR 150MG TABLET BY MOUTH EVERY MORNING AND EVERY EVENING ON DAYS 1-15 BE
     Route: 048
  2. XELODA [Suspect]
     Active Substance: CAPECITABINE
     Dosage: TAKE TWO 500MG TABLET AND FOUR 150MG TABLET BY MOUTH EVERY MORNING AND EVERY EVENING ON DAYS 1-15 BE
     Route: 048

REACTIONS (10)
  - Cellulitis [Unknown]
  - Peroneal nerve palsy [Unknown]
  - Exposure to toxic agent [Unknown]
  - Cerebrovascular accident [Unknown]
  - Type 2 diabetes mellitus [Unknown]
  - Joint swelling [Unknown]
  - Emotional distress [Unknown]
  - Erythema [Unknown]
  - Myocardial infarction [Unknown]
  - Prostate cancer [Unknown]
